FAERS Safety Report 9333668 (Version 1)
Quarter: 2013Q2

REPORT INFORMATION
  Report Type: Spontaneous
  Country: US (occurrence: US)
  Receive Date: 20130606
  Receipt Date: 20130606
  Transmission Date: 20140414
  Serious: No
  Sender: FDA-Public Use
  Company Number: US-AMGEN-USASP2013000451

PATIENT
  Age: 73 Year
  Sex: Female

DRUGS (6)
  1. PROLIA [Suspect]
     Indication: OSTEOPOROSIS POSTMENOPAUSAL
     Dosage: UNK
     Dates: start: 20120731
  2. MELOXICAM [Concomitant]
     Dosage: 7.5 UNK, UNK
  3. METOPROLOL [Concomitant]
  4. CALCIUM [Concomitant]
  5. VITAMIN D3 [Concomitant]
  6. GINKGO BILOBA [Concomitant]

REACTIONS (4)
  - Coccydynia [Unknown]
  - Sensation of heaviness [Not Recovered/Not Resolved]
  - Pruritus [Recovering/Resolving]
  - Constipation [Recovering/Resolving]
